FAERS Safety Report 23348459 (Version 1)
Quarter: 2023Q4

REPORT INFORMATION
  Report Type: Report from Study
  Country: DE (occurrence: DE)
  Receive Date: 20231228
  Receipt Date: 20231228
  Transmission Date: 20240110
  Serious: Yes (Hospitalization)
  Sender: FDA-Public Use
  Company Number: DE-BAXTER-2023BAX038957

PATIENT
  Age: 67 Year
  Sex: Female

DRUGS (5)
  1. OLIMEL [Suspect]
     Active Substance: AMINO ACIDS\DEXTROSE\SOYBEAN OIL
     Indication: Decreased appetite
     Dosage: 1000 MILLILITER (ML) ONCE A DAY
     Route: 042
     Dates: start: 20231213, end: 20231219
  2. VITAMINS [Suspect]
     Active Substance: VITAMINS
     Indication: Decreased appetite
     Dosage: (AT AN UNSPECIFIED DOSE) ONCE A DAY
     Route: 042
     Dates: start: 20231213, end: 20231219
  3. ERGOCALCIFEROL\PHYTONADIONE\RETINOL\TOCOPHEROL [Suspect]
     Active Substance: ERGOCALCIFEROL\PHYTONADIONE\RETINOL\TOCOPHEROL
     Indication: Decreased appetite
     Dosage: (AT AN UNSPECIFIED DOSE) ONCE A DAY
     Route: 042
     Dates: start: 20231213, end: 20231219
  4. ELECTROLYTES NOS\MINERALS [Suspect]
     Active Substance: ELECTROLYTES NOS\MINERALS
     Indication: Decreased appetite
     Dosage: (MANUFACTURER: LABORATOIRE AGUETTANT S.A.S.) ONCE A DAY (AT AN UNSPECIFIED DOSE)
     Route: 042
     Dates: start: 20231213, end: 20231219
  5. UNSPECIFIED INGREDIENT [Suspect]
     Active Substance: UNSPECIFIED INGREDIENT
     Route: 065

REACTIONS (3)
  - Fall [Recovering/Resolving]
  - Hypotension [Recovering/Resolving]
  - Balance disorder [Recovering/Resolving]

NARRATIVE: CASE EVENT DATE: 20231219
